FAERS Safety Report 25736986 (Version 2)
Quarter: 2025Q4

REPORT INFORMATION
  Report Type: Spontaneous
  Country: EU (occurrence: EU)
  Receive Date: 20250828
  Receipt Date: 20251128
  Transmission Date: 20260118
  Serious: Yes (Other)
  Sender: MERCK SHARP & DOHME LLC
  Company Number: None

PATIENT
  Age: 45 Year
  Sex: Male
  Weight: 70.9 kg

DRUGS (1)
  1. KEYTRUDA [Suspect]
     Active Substance: PEMBROLIZUMAB
     Indication: Metastatic malignant melanoma
     Dosage: TIME INTERVAL: CYCLICAL: 40 MG EVERY 42 DAYS
     Route: 042
     Dates: start: 20250509, end: 20250623

REACTIONS (3)
  - Hyperacusis [Recovered/Resolved]
  - Vertigo [Recovered/Resolved]
  - Tinnitus [Recovered/Resolved]

NARRATIVE: CASE EVENT DATE: 20250523
